FAERS Safety Report 14100118 (Version 3)
Quarter: 2017Q4

REPORT INFORMATION
  Report Type: Spontaneous
  Country: RU (occurrence: RU)
  Receive Date: 20171017
  Receipt Date: 20171120
  Transmission Date: 20180321
  Serious: Yes (Other)
  Sender: FDA-Public Use
  Company Number: RU-AMGEN-RUSSP2017154642

PATIENT
  Age: 68 Year
  Sex: Female
  Weight: 68 kg

DRUGS (3)
  1. PROLIA [Suspect]
     Active Substance: DENOSUMAB
     Indication: OSTEOPOROSIS POSTMENOPAUSAL
     Dosage: 60 MG (1ML), Q6MO
     Route: 058
     Dates: start: 20140210
  2. CALCIUM [Concomitant]
     Active Substance: CALCIUM
     Dosage: UNK,1000 TO 1200 MG
  3. VITAMIN D [Concomitant]
     Active Substance: CHOLECALCIFEROL
     Dosage: UNK, 50,000 IU PER WEEK FOR 4 WEEKS,800 TO 2000 IU/DAY

REACTIONS (2)
  - Lower limb fracture [Recovered/Resolved]
  - Ankle fracture [Unknown]

NARRATIVE: CASE EVENT DATE: 20140526
